FAERS Safety Report 24444847 (Version 1)
Quarter: 2024Q4

REPORT INFORMATION
  Report Type: Spontaneous
  Country: US (occurrence: None)
  Receive Date: 20241016
  Receipt Date: 20241016
  Transmission Date: 20250114
  Serious: No
  Sender: Public
  Company Number: None

PATIENT
  Age: 67 Year
  Sex: Female
  Weight: 47.7 kg

DRUGS (3)
  1. FLUOROURACIL [Suspect]
     Active Substance: FLUOROURACIL
  2. LEUCOVORIN CALCIUM [Suspect]
     Active Substance: LEUCOVORIN CALCIUM
  3. ELOXATIN [Suspect]
     Active Substance: OXALIPLATIN

REACTIONS (6)
  - Retching [None]
  - Weight decreased [None]
  - Decreased appetite [None]
  - Fatigue [None]
  - White blood cell count decreased [None]
  - Blood sodium decreased [None]

NARRATIVE: CASE EVENT DATE: 20241014
